FAERS Safety Report 13238086 (Version 2)
Quarter: 2017Q1

REPORT INFORMATION
  Report Type: Spontaneous
  Country: US (occurrence: US)
  Receive Date: 20170216
  Receipt Date: 20170308
  Transmission Date: 20170428
  Serious: No
  Sender: FDA-Public Use
  Company Number: US-ASTRAZENECA-2017SE12990

PATIENT
  Sex: Female

DRUGS (1)
  1. ZOMIG [Suspect]
     Active Substance: ZOLMITRIPTAN
     Indication: MIGRAINE
     Dosage: 5 MG 1 SPRAY INTO THE NOSE AND CAN TAKE 1 SPRAY AGAIN LATER IF MIGRAINE IS NOT RESOLVED.
     Route: 045
     Dates: start: 2016

REACTIONS (4)
  - Migraine [Unknown]
  - Nasal discomfort [Unknown]
  - Device issue [Unknown]
  - Drug dose omission [Unknown]

NARRATIVE: CASE EVENT DATE: 20170131
